FAERS Safety Report 14034331 (Version 1)
Quarter: 2017Q4

REPORT INFORMATION
  Report Type: Report from Study
  Country: US (occurrence: US)
  Receive Date: 20171003
  Receipt Date: 20171003
  Transmission Date: 20180321
  Serious: Yes (Other)
  Sender: FDA-Public Use
  Company Number: US-ELI_LILLY_AND_COMPANY-US201709009504

PATIENT
  Sex: Male

DRUGS (1)
  1. BASAGLAR [Suspect]
     Active Substance: INSULIN GLARGINE
     Indication: PRODUCT USED FOR UNKNOWN INDICATION
     Dosage: 70 U, EACH MORNING
     Route: 058

REACTIONS (7)
  - Loss of consciousness [Unknown]
  - Blood glucose abnormal [Unknown]
  - Wound [Unknown]
  - Confusional state [Unknown]
  - Irritability [Unknown]
  - Head injury [Unknown]
  - Visual impairment [Unknown]
